FAERS Safety Report 12708223 (Version 1)
Quarter: 2016Q3

REPORT INFORMATION
  Report Type: Spontaneous
  Country: US (occurrence: US)
  Receive Date: 20160901
  Receipt Date: 20160901
  Transmission Date: 20161109
  Serious: Yes (Death, Disabling)
  Sender: FDA-Public Use
  Company Number: US-BAYER-2016-169948

PATIENT
  Age: 29 Year
  Sex: Female

DRUGS (1)
  1. MIRENA [Suspect]
     Active Substance: LEVONORGESTREL
     Dosage: 20 MCG/24HR, CONT
     Route: 015
     Dates: start: 2008, end: 201103

REACTIONS (7)
  - Completed suicide [Fatal]
  - Vision blurred [Fatal]
  - Benign intracranial hypertension [Fatal]
  - Diplopia [Fatal]
  - Nausea [Fatal]
  - Headache [Fatal]
  - Blindness [Fatal]

NARRATIVE: CASE EVENT DATE: 201102
